FAERS Safety Report 8812621 (Version 1)
Quarter: 2012Q4

REPORT INFORMATION
  Report Type: Report from Study
  Country: US (occurrence: US)
  Receive Date: 20120927
  Receipt Date: 20120927
  Transmission Date: 20130627
  Serious: Yes (Hospitalization, Other)
  Sender: FDA-Public Use
  Company Number: US-ABBOTT-12P-163-0985467-00

PATIENT
  Age: 55 Year
  Sex: Female

DRUGS (3)
  1. HUMIRA [Suspect]
     Indication: CROHN^S DISEASE
     Dosage: first four PENS, loading dose
     Dates: start: 20120319
  2. HUMIRA [Suspect]
  3. METHOTREXATE [Concomitant]
     Indication: CROHN^S DISEASE
     Dosage: Weekly
     Dates: start: 201202, end: 20120714

REACTIONS (7)
  - Intestinal resection [Recovering/Resolving]
  - Fistula repair [Unknown]
  - Abdominal adhesions [Unknown]
  - Injection site pain [Recovering/Resolving]
  - Hypertension [Recovered/Resolved]
  - Procedural pain [Unknown]
  - Intestinal fistula [Unknown]
